FAERS Safety Report 16093939 (Version 1)
Quarter: 2019Q1

REPORT INFORMATION
  Report Type: Other
  Country: HR (occurrence: HR)
  Receive Date: 20190320
  Receipt Date: 20190320
  Transmission Date: 20190418
  Serious: Yes (Hospitalization, Other)
  Sender: FDA-Public Use
  Company Number: HR-APOTEX-2019AP009773

PATIENT
  Age: 67 Year
  Sex: Male

DRUGS (4)
  1. NIBEL [Concomitant]
     Indication: HYPERTENSION
     Dosage: 5 MG, QD
     Route: 048
  2. SEROXAT FILM-COATED TABLET [Suspect]
     Active Substance: PAROXETINE HYDROCHLORIDE
     Indication: DEPRESSION
     Dosage: UNK
     Route: 048
  3. CO DALNEVA [Concomitant]
     Indication: HYPERTENSION
     Dosage: 1 DF, QD (8 MG PERINDOPRIL + 2,5 MG INDAPAMIDE + 10 MG AMLODIPINE)
     Route: 048
  4. MISAR                              /00595201/ [Concomitant]
     Active Substance: ALPRAZOLAM
     Indication: DEPRESSION
     Dosage: 1 MG, QD
     Route: 048

REACTIONS (6)
  - Confusional state [Recovered/Resolved]
  - Acute kidney injury [Recovered/Resolved]
  - Headache [Recovered/Resolved]
  - Hyponatraemia [Recovered/Resolved]
  - Agitation [Recovered/Resolved]
  - Muscle spasms [Recovered/Resolved]

NARRATIVE: CASE EVENT DATE: 20190217
